FAERS Safety Report 9299043 (Version 1)
Quarter: 2013Q2

REPORT INFORMATION
  Report Type: Spontaneous
  Country: US (occurrence: US)
  Receive Date: 20130520
  Receipt Date: 20130520
  Transmission Date: 20140414
  Serious: Yes (Hospitalization, Other)
  Sender: FDA-Public Use
  Company Number: US-ABBOTT-13P-163-1088789-00

PATIENT
  Sex: Male

DRUGS (3)
  1. SYNTHROID [Suspect]
     Indication: HYPOTHYROIDISM
     Route: 048
     Dates: start: 1987, end: 2003
  2. SYNTHROID [Suspect]
     Dates: start: 201304
  3. LIPITOR [Suspect]
     Indication: PRODUCT USED FOR UNKNOWN INDICATION

REACTIONS (4)
  - Coronary artery occlusion [Unknown]
  - Chest pain [Unknown]
  - Blood thyroid stimulating hormone abnormal [Unknown]
  - Pain in extremity [Unknown]
